FAERS Safety Report 4768471-9 (Version None)
Quarter: 2005Q3

REPORT INFORMATION
  Report Type: 
  Country: None (occurrence: None)
  Receive Date: 20050914
  Receipt Date: 20050906
  Transmission Date: 20060218
  Serious: Yes (Other)
  Sender: FDA-Public Use
  Company Number: US-MERCK-0509USA00914

PATIENT
  Sex: Male

DRUGS (2)
  1. VIOXX [Suspect]
     Indication: INFLAMMATION
     Route: 048
     Dates: start: 20031101, end: 20040612
  2. VIOXX [Suspect]
     Indication: PAIN
     Route: 048
     Dates: start: 20031101, end: 20040612

REACTIONS (1)
  - CEREBROVASCULAR ACCIDENT [None]
